FAERS Safety Report 7550193 (Version 3)
Quarter: 2015Q1

REPORT INFORMATION
  Report Type: Spontaneous
  Country: FR (occurrence: FR)
  Receive Date: 20100823
  Receipt Date: 20150209
  Transmission Date: 20150721
  Serious: Yes (Life-Threatening, Hospitalization, Other)
  Sender: FDA-Public Use
  Company Number: FR-PFIZER INC-2010102614

PATIENT
  Age: 9 Year
  Sex: Male

DRUGS (16)
  1. ATARAX [Suspect]
     Active Substance: HYDROXYZINE\HYDROXYZINE HYDROCHLORIDE
     Indication: AGITATION
     Dosage: UNK
     Dates: start: 201005, end: 20100604
  2. METHYLPHENIDATE [Suspect]
     Active Substance: METHYLPHENIDATE
     Indication: ABNORMAL BEHAVIOUR
     Dosage: UNK
     Route: 048
     Dates: start: 2008, end: 201005
  3. METHYLPHENIDATE [Suspect]
     Active Substance: METHYLPHENIDATE
     Dosage: 25 MG DAILY
     Route: 048
     Dates: start: 20100621, end: 20100629
  4. NOPRON [Suspect]
     Active Substance: NIAPRAZINE
     Dosage: UNK
     Dates: start: 20100628, end: 20100629
  5. RISPERDAL [Suspect]
     Active Substance: RISPERIDONE
     Dosage: 1 MG, 2X/DAY
     Dates: start: 2008, end: 20100530
  6. RIVOTRIL [Suspect]
     Active Substance: CLONAZEPAM
     Dosage: UNK
     Dates: start: 20100604, end: 20100621
  7. TERCIAN [Suspect]
     Active Substance: CYAMEMAZINE
     Dosage: 12.5 MG, 2X/DAY
     Dates: start: 2008, end: 20100531
  8. TERCIAN [Suspect]
     Active Substance: CYAMEMAZINE
     Dosage: UNK
     Route: 065
     Dates: start: 201005, end: 20100531
  9. ATARAX [Suspect]
     Active Substance: HYDROXYZINE\HYDROXYZINE HYDROCHLORIDE
     Indication: ANXIETY
     Dosage: 200 MG, UNK
     Route: 048
     Dates: start: 20100621, end: 20100629
  10. CONCERTA [Suspect]
     Active Substance: METHYLPHENIDATE HYDROCHLORIDE
     Dosage: UNK
     Dates: start: 20100531, end: 20100531
  11. ATARAX [Suspect]
     Active Substance: HYDROXYZINE\HYDROXYZINE HYDROCHLORIDE
     Dosage: UNK MG, UNK
  12. ARTANE [Suspect]
     Active Substance: TRIHEXYPHENIDYL HYDROCHLORIDE
     Indication: PARKINSON^S DISEASE
     Dosage: 30 MG DAILY
     Route: 048
     Dates: start: 20100623, end: 20100629
  13. RISPERDAL [Suspect]
     Active Substance: RISPERIDONE
     Dosage: UNK
     Dates: start: 20100531
  14. RITALIN [Suspect]
     Active Substance: METHYLPHENIDATE HYDROCHLORIDE
     Dosage: UNK
     Dates: start: 2008, end: 201005
  15. NEULEPTIL [Suspect]
     Active Substance: PERICIAZINE
     Dosage: 10 ORAL DROPS IN MORNING AND 20 ORAL DROPS AT LUNCH AND AT NIGHT
     Dates: start: 20100515, end: 20100530
  16. LEPTICUR [Suspect]
     Active Substance: TROPATEPINE HYDROCHLORIDE
     Dosage: UNK
     Dates: start: 20100604, end: 20100621

REACTIONS (20)
  - Altered state of consciousness [Recovered/Resolved]
  - Respiratory failure [Recovered/Resolved]
  - Dyskinesia [Recovered/Resolved]
  - Hypotonia [Recovered/Resolved]
  - Abnormal behaviour [Not Recovered/Not Resolved]
  - Tachycardia [Recovered/Resolved]
  - Hyperthermia [Recovered/Resolved]
  - Toxicity to various agents [Unknown]
  - Acute kidney injury [Recovered/Resolved]
  - Dry skin [Recovered/Resolved]
  - Condition aggravated [Not Recovered/Not Resolved]
  - Aggression [Recovered/Resolved]
  - Dehydration [Recovered/Resolved]
  - Rhabdomyolysis [Recovered/Resolved]
  - Hepatocellular injury [Recovered/Resolved]
  - Agitation [Recovered/Resolved]
  - Pneumonia aspiration [Recovered/Resolved]
  - Haemodynamic instability [Recovered/Resolved]
  - General physical condition abnormal [Recovered/Resolved]
  - Respiratory distress [Recovered/Resolved]

NARRATIVE: CASE EVENT DATE: 2010
